FAERS Safety Report 6497058-5 (Version None)
Quarter: 2009Q4

REPORT INFORMATION
  Report Type: 
  Country: None (occurrence: None)
  Receive Date: 20091215
  Receipt Date: 20090504
  Transmission Date: 20100525
  Serious: No
  Sender: FDA-Public Use
  Company Number: A0768329A

PATIENT
  Sex: Male

DRUGS (3)
  1. AVODART [Suspect]
     Route: 048
     Dates: start: 20080401, end: 20090401
  2. UROXATRAL [Concomitant]
  3. SANCTURA [Concomitant]

REACTIONS (1)
  - ALOPECIA [None]
